FAERS Safety Report 24081081 (Version 2)
Quarter: 2024Q3

REPORT INFORMATION
  Report Type: Spontaneous
  Country: US (occurrence: US)
  Receive Date: 20240711
  Receipt Date: 20240812
  Transmission Date: 20241017
  Serious: No
  Sender: JOHNSON AND JOHNSON
  Company Number: US-JNJFOC-20240707101

PATIENT
  Age: 9 Decade
  Sex: Female

DRUGS (1)
  1. WOMENS ROGAINE UNSCENTED [Suspect]
     Active Substance: MINOXIDIL
     Indication: Psoriasis
     Dosage: PRODUCT DOSE OR QUANTITY: HALF CAP FULL
     Route: 061
     Dates: start: 202404

REACTIONS (6)
  - Nail discolouration [Not Recovered/Not Resolved]
  - Off label use [Unknown]
  - Poor quality product administered [Unknown]
  - Therapeutic response unexpected [Unknown]
  - Product formulation issue [Unknown]
  - Contraindicated product prescribed [Unknown]

NARRATIVE: CASE EVENT DATE: 20240101
